FAERS Safety Report 20661120 (Version 2)
Quarter: 2022Q2

REPORT INFORMATION
  Report Type: Spontaneous
  Country: CA (occurrence: CA)
  Receive Date: 20220331
  Receipt Date: 20220411
  Transmission Date: 20220720
  Serious: Yes (Other)
  Sender: FDA-Public Use
  Company Number: CA-JNJFOC-20220349494

PATIENT
  Age: 2 Month
  Sex: Female

DRUGS (1)
  1. STELARA [Suspect]
     Active Substance: USTEKINUMAB
     Indication: Crohn^s disease
     Route: 058

REACTIONS (5)
  - Colectomy [Unknown]
  - Ileostomy [Unknown]
  - Off label use [Unknown]
  - Product use issue [Unknown]
  - Treatment failure [Unknown]
